FAERS Safety Report 9596498 (Version 2)
Quarter: 2013Q4

REPORT INFORMATION
  Report Type: Spontaneous
  Country: US (occurrence: US)
  Receive Date: 20131004
  Receipt Date: 20131129
  Transmission Date: 20140711
  Serious: Yes (Other)
  Sender: FDA-Public Use
  Company Number: US-PFIZER INC-2013282971

PATIENT
  Age: 61 Year
  Sex: Female
  Weight: 63.49 kg

DRUGS (3)
  1. NEURONTIN [Suspect]
     Indication: COCCYDYNIA
     Dosage: 600 MG, 3X/DAY
     Dates: start: 201301, end: 2013
  2. NEURONTIN [Suspect]
     Dosage: 600 MG, 2X/DAY
     Dates: start: 2013, end: 2013
  3. NEURONTIN [Suspect]
     Dosage: 600 MG, 1X/DAY
     Dates: start: 2013, end: 201309

REACTIONS (1)
  - Urinary tract infection [Unknown]
